FAERS Safety Report 6540775-9 (Version None)
Quarter: 2010Q1

REPORT INFORMATION
  Report Type: 
  Country: None (occurrence: None)
  Receive Date: 20100118
  Receipt Date: 20100106
  Transmission Date: 20100710
  Serious: Yes (Hospitalization)
  Sender: FDA-Public Use
  Company Number: US-BAYER-US-2006-000218

PATIENT
  Age: 36 Year
  Sex: Female
  Weight: 63 kg

DRUGS (2)
  1. YASMIN [Suspect]
     Indication: CONTRACEPTION
     Dosage: 1 TAB(S), 1X/DAY [DAILY DOSE: 1 TAB(S)]
     Route: 048
     Dates: start: 20050401, end: 20051227
  2. PAXIL [Concomitant]
     Indication: MOOD SWINGS
     Dosage: UNK, UNK
     Route: 048
     Dates: start: 20051001

REACTIONS (1)
  - CEREBROVASCULAR ACCIDENT [None]
